FAERS Safety Report 12907503 (Version 1)
Quarter: 2016Q4

REPORT INFORMATION
  Report Type: Spontaneous
  Country: IL (occurrence: IL)
  Receive Date: 20161103
  Receipt Date: 20161103
  Transmission Date: 20170207
  Serious: Yes (Hospitalization)
  Sender: FDA-Public Use
  Company Number: IL-PFIZER INC-2016506977

PATIENT
  Age: 70 Year
  Sex: Male

DRUGS (2)
  1. SUTENT [Suspect]
     Active Substance: SUNITINIB MALATE
     Indication: RENAL CELL CARCINOMA
     Dosage: 50 MG, UNK
  2. RECLAST [Concomitant]
     Active Substance: ZOLEDRONIC ACID

REACTIONS (3)
  - Rectal ulcer [Unknown]
  - Osteonecrosis of jaw [Unknown]
  - Gastric ulcer [Unknown]

NARRATIVE: CASE EVENT DATE: 201604
